FAERS Safety Report 19029352 (Version 1)
Quarter: 2021Q1

REPORT INFORMATION
  Report Type: Report from Study
  Country: IT (occurrence: IT)
  Receive Date: 20210319
  Receipt Date: 20210319
  Transmission Date: 20210420
  Serious: Yes (Hospitalization)
  Sender: FDA-Public Use
  Company Number: IT-ROCHE-2787176

PATIENT
  Age: 79 Year
  Sex: Female
  Weight: 63 kg

DRUGS (11)
  1. ATEZOLIZUMAB. [Suspect]
     Active Substance: ATEZOLIZUMAB
     Indication: SMALL CELL LUNG CANCER
     Dosage: DATE OF LAST DOSE ADMINISTERED BEFORE THE EVENT? 14/JAN/2021?LAST DOSE ADMINISTERED? 1200 MG
     Route: 042
     Dates: start: 20200930
  2. TAREG [Concomitant]
     Active Substance: VALSARTAN
     Indication: HYPERTENSION
  3. NORVASC [Concomitant]
     Active Substance: AMLODIPINE BESYLATE
     Indication: HYPERTENSION
  4. ZETIA [Concomitant]
     Active Substance: EZETIMIBE
     Indication: HYPERCHOLESTEROLAEMIA
  5. TORVAST [Concomitant]
     Active Substance: ATORVASTATIN
     Indication: HYPERCHOLESTEROLAEMIA
  6. CARBOPLATIN. [Suspect]
     Active Substance: CARBOPLATIN
     Indication: SMALL CELL LUNG CANCER
     Dosage: DATE OF LAST DOSE BEFORE THE EVENT? 02/DEC/2020?LAST DOSE ADMINISTERED? 444.4 MG
     Route: 042
     Dates: start: 20200930
  7. ETOPOSIDE. [Suspect]
     Active Substance: ETOPOSIDE
     Indication: SMALL CELL LUNG CANCER
     Dosage: DATE OF LAST DOSE ADMINISTERED BEFORE EVENT? 04/DEC/2020?LAST DOSE ADMINISTERED? 149 MG
     Route: 042
     Dates: start: 20200930
  8. DELTACORTENE [Concomitant]
     Active Substance: PREDNISONE
     Dates: start: 20200729
  9. BRETARIS [Concomitant]
     Active Substance: ACLIDINIUM BROMIDE
  10. BEVACIZUMAB. [Suspect]
     Active Substance: BEVACIZUMAB
     Indication: SMALL CELL LUNG CANCER
     Dosage: DATE OF LAST DOSE BEFORE EVENT? 14/JAN/2021?LAST DOSE ADMINISTERED?472.5 MG
     Route: 042
     Dates: start: 20201021
  11. CARDIOASPIRINA [Concomitant]
     Active Substance: ASPIRIN

REACTIONS (1)
  - Pneumothorax [Recovered/Resolved]

NARRATIVE: CASE EVENT DATE: 20210124
